FAERS Safety Report 23328444 (Version 1)
Quarter: 2023Q4

REPORT INFORMATION
  Report Type: Other
  Country: FR (occurrence: None)
  Receive Date: 20231221
  Receipt Date: 20231221
  Transmission Date: 20240110
  Serious: Yes (Other)
  Sender: FDA-Public Use
  Company Number: FR-ROCHE-3471207

PATIENT

DRUGS (1)
  1. TOCILIZUMAB [Suspect]
     Active Substance: TOCILIZUMAB
     Indication: Polymyalgia rheumatica
     Dosage: EXCEPT ONE PATIENT WHO RECEIVED A DOSE OF 4 MG/KG/MONTH.
     Route: 042

REACTIONS (7)
  - Bursitis [Unknown]
  - Urinary tract infection [Unknown]
  - Bacteraemia [Unknown]
  - Cutaneous lymphoma [Unknown]
  - Myocardial infarction [Unknown]
  - Neutropenia [Unknown]
  - Off label use [Unknown]
